FAERS Safety Report 8669894 (Version 3)
Quarter: 2012Q4

REPORT INFORMATION
  Report Type: 
  Country: FR (occurrence: FR)
  Receive Date: 20120718
  Receipt Date: 20121018
  Transmission Date: 20130627
  Serious: Yes (Other)
  Sender: FDA-Public Use
  Company Number: FR-PFIZER INC-2012170757

PATIENT
  Age: 73 Year
  Sex: Male

DRUGS (3)
  1. CORDARONE [Suspect]
     Indication: ATRIAL FIBRILLATION
     Dosage: 200 mg, daily
     Route: 048
     Dates: start: 20101108, end: 20110527
  2. AXELER [Concomitant]
     Indication: HYPERTENSION
     Dosage: UNK
  3. HEMIGOXINE NATIVELLE [Concomitant]
     Indication: ATRIAL FIBRILLATION
     Dosage: UNK

REACTIONS (1)
  - Optic ischaemic neuropathy [Recovered/Resolved]
